FAERS Safety Report 4684607-2 (Version None)
Quarter: 2005Q2

REPORT INFORMATION
  Report Type: 
  Country: None (occurrence: None)
  Receive Date: 20050531
  Receipt Date: 20040512
  Transmission Date: 20051028
  Serious: Yes (Hospitalization)
  Sender: FDA-Public Use
  Company Number: 200413718US

PATIENT

DRUGS (2)
  1. LOVENOX [Suspect]
  2. WARFARIN SODIUM [Concomitant]

REACTIONS (1)
  - MUSCLE HAEMORRHAGE [None]
